FAERS Safety Report 17915495 (Version 1)
Quarter: 2020Q2

REPORT INFORMATION
  Report Type: Spontaneous
  Country: AT (occurrence: AT)
  Receive Date: 20200619
  Receipt Date: 20200619
  Transmission Date: 20200714
  Serious: Yes (Death, Life-Threatening, Hospitalization, Other)
  Sender: FDA-Public Use
  Company Number: AT-BAXTER-2020BAX008630

PATIENT
  Age: 60 Year
  Sex: Male

DRUGS (7)
  1. RITUXIMAB. [Suspect]
     Active Substance: RITUXIMAB
     Indication: SPLENIC MARGINAL ZONE LYMPHOMA STAGE IV
     Dosage: R-CHOP THERAPY
     Route: 065
     Dates: start: 2017
  2. FILGRASTIM [Concomitant]
     Active Substance: FILGRASTIM
     Indication: PRODUCT USED FOR UNKNOWN INDICATION
     Route: 065
  3. G-CSF [Concomitant]
     Active Substance: GRANULOCYTE COLONY-STIMULATING FACTOR NOS
     Indication: PRODUCT USED FOR UNKNOWN INDICATION
     Route: 065
  4. PREDNISONE. [Suspect]
     Active Substance: PREDNISONE
     Indication: SPLENIC MARGINAL ZONE LYMPHOMA STAGE IV
     Dosage: R-CHOP THERAPY
     Route: 065
     Dates: start: 2017
  5. DOXIL [Suspect]
     Active Substance: DOXORUBICIN HYDROCHLORIDE
     Indication: SPLENIC MARGINAL ZONE LYMPHOMA STAGE IV
     Dosage: CYCLICAL
     Route: 065
     Dates: start: 2017
  6. ENDOXAN BAXTER [Suspect]
     Active Substance: CYCLOPHOSPHAMIDE
     Indication: SPLENIC MARGINAL ZONE LYMPHOMA STAGE IV
     Dosage: R-CHOP THERAPY
     Route: 065
     Dates: start: 2017
  7. VINCRISTINE [Suspect]
     Active Substance: VINCRISTINE
     Indication: SPLENIC MARGINAL ZONE LYMPHOMA STAGE IV
     Dosage: R-CHOP THERAPY
     Route: 065
     Dates: start: 2017

REACTIONS (19)
  - Herpes simplex [Fatal]
  - Central nervous system vasculitis [Fatal]
  - Herpes simplex encephalitis [Fatal]
  - Epilepsy [Unknown]
  - Sinusitis [Unknown]
  - Cerebral ischaemia [Fatal]
  - Bone marrow toxicity [Not Recovered/Not Resolved]
  - Asthenia [Fatal]
  - Splenic marginal zone lymphoma [Unknown]
  - Disturbance in attention [Fatal]
  - Confusional state [Fatal]
  - Headache [Unknown]
  - Malignant neoplasm progression [Unknown]
  - Hypoaesthesia [Fatal]
  - Pyrexia [Unknown]
  - Cerebral infarction [Fatal]
  - Ischaemic stroke [Fatal]
  - Lymphopenia [Fatal]
  - Febrile neutropenia [Fatal]

NARRATIVE: CASE EVENT DATE: 2017
